FAERS Safety Report 10881195 (Version 4)
Quarter: 2015Q1

REPORT INFORMATION
  Report Type: Spontaneous
  Country: IT (occurrence: IT)
  Receive Date: 20150303
  Receipt Date: 20150325
  Transmission Date: 20150721
  Serious: Yes (Death, Hospitalization)
  Sender: FDA-Public Use
  Company Number: IT-ROCHE-1545538

PATIENT
  Age: 70 Year
  Sex: Female
  Weight: 95 kg

DRUGS (7)
  1. SOVALDI [Suspect]
     Active Substance: SOFOSBUVIR
     Indication: CHRONIC HEPATITIS C
     Route: 048
     Dates: start: 20150130, end: 20150217
  2. ALBUMIN [Suspect]
     Active Substance: ALBUMIN (HUMAN)
     Indication: CHOLECYSTITIS
  3. RIBAVIRIN. [Suspect]
     Active Substance: RIBAVIRIN
     Indication: CHRONIC HEPATITIS C
     Route: 048
     Dates: start: 20150130, end: 20150217
  4. RIBAVIRIN. [Suspect]
     Active Substance: RIBAVIRIN
     Indication: HEPATIC CIRRHOSIS
  5. SOVALDI [Suspect]
     Active Substance: SOFOSBUVIR
     Indication: HEPATIC CIRRHOSIS
  6. ALBUMIN [Suspect]
     Active Substance: ALBUMIN (HUMAN)
     Indication: HYPOVOLAEMIA
  7. ALBUMIN [Suspect]
     Active Substance: ALBUMIN (HUMAN)
     Indication: URINARY TRACT INFECTION
     Route: 042
     Dates: start: 20140615, end: 20150217

REACTIONS (8)
  - Respiratory failure [Fatal]
  - Urinary tract infection [Recovered/Resolved with Sequelae]
  - Cholecystitis infective [Recovered/Resolved with Sequelae]
  - Pyrexia [Recovered/Resolved with Sequelae]
  - Chills [Recovered/Resolved with Sequelae]
  - Coagulopathy [Recovered/Resolved with Sequelae]
  - Multi-organ failure [Fatal]
  - Septic shock [Recovered/Resolved with Sequelae]

NARRATIVE: CASE EVENT DATE: 20150217
